FAERS Safety Report 8508929-X (Version None)
Quarter: 2012Q3

REPORT INFORMATION
  Report Type: 
  Country: None (occurrence: None)
  Receive Date: 20120713
  Receipt Date: 20120710
  Transmission Date: 20120928
  Serious: Yes (Life-Threatening, Hospitalization, Disabling)
  Sender: FDA-Public Use
  Company Number: DK-JNJFOC-20120512030

PATIENT
  Sex: Female
  Weight: 70 kg

DRUGS (5)
  1. DESOGESTREL AND ETHINYL ESTRADIOL [Suspect]
     Indication: CONTRACEPTION
     Route: 048
     Dates: start: 20040425, end: 20040427
  2. TRAMADOL HCL [Suspect]
     Indication: PRODUCT USED FOR UNKNOWN INDICATION
     Route: 065
  3. PAROXETINE HYDROCHLORIDE [Interacting]
     Indication: PRODUCT USED FOR UNKNOWN INDICATION
     Route: 065
     Dates: start: 20020701
  4. AKARIN [Concomitant]
     Indication: DEPRESSION
     Route: 048
  5. DICLOFENAC SODIUM [Suspect]
     Indication: BACK PAIN
     Route: 065
     Dates: start: 20040429, end: 20040429

REACTIONS (9)
  - HEADACHE [None]
  - WEIGHT INCREASED [None]
  - SEROTONIN SYNDROME [None]
  - PALPITATIONS [None]
  - CARDIAC ARREST [None]
  - DRUG INTERACTION [None]
  - CHEST PAIN [None]
  - PARAESTHESIA [None]
  - BACK PAIN [None]
